FAERS Safety Report 4826969-9 (Version None)
Quarter: 2005Q4

REPORT INFORMATION
  Report Type: 
  Country: None (occurrence: None)
  Receive Date: 20051114
  Receipt Date: 20051104
  Transmission Date: 20060501
  Serious: Yes (Other)
  Sender: FDA-Public Use
  Company Number: GB-JNJFOC-20051101672

PATIENT
  Sex: Female
  Weight: 53 kg

DRUGS (10)
  1. REMICADE [Suspect]
     Indication: RHEUMATOID ARTHRITIS
     Route: 042
  2. METHOTREXATE [Concomitant]
     Route: 065
  3. PREDNISOLONE [Concomitant]
     Route: 065
  4. CELEBREX [Concomitant]
     Route: 065
  5. COTRIMAZOLE [Concomitant]
     Route: 065
  6. COTRIMAZOLE [Concomitant]
     Route: 065
  7. FOLIC ACID [Concomitant]
     Route: 065
  8. FOSAMAX [Concomitant]
     Route: 065
  9. ESTROGENIC SUBSTANCE [Concomitant]
     Route: 065
  10. TRAMADOL HCL [Concomitant]
     Route: 065

REACTIONS (1)
  - BASAL CELL CARCINOMA [None]
